FAERS Safety Report 18664916 (Version 1)
Quarter: 2020Q4

REPORT INFORMATION
  Report Type: Spontaneous
  Country: DE (occurrence: DE)
  Receive Date: 20201225
  Receipt Date: 20201225
  Transmission Date: 20210114
  Serious: Yes (Hospitalization)
  Sender: FDA-Public Use
  Company Number: DE-TEVA-2020-DE-1860751

PATIENT
  Age: 77 Year
  Sex: Male

DRUGS (4)
  1. ACC LONG 600MG [Concomitant]
     Dosage: 600 MILLIGRAM DAILY;  1-0-0-0
  2. TORASEMID [Suspect]
     Active Substance: TORSEMIDE
     Dosage: 2.5 MILLIGRAM DAILY;  1-0-0-0
  3. DIGITALIS [Concomitant]
     Active Substance: DIGITALIS
     Dosage: .07 MILLIGRAM DAILY;  1-0-0-0
  4. METOPROLOL. [Concomitant]
     Active Substance: METOPROLOL
     Dosage: 23.75 MILLIGRAM DAILY;  1-0-0-0

REACTIONS (4)
  - Anaemia [Recovering/Resolving]
  - Condition aggravated [Recovering/Resolving]
  - Dehydration [Recovering/Resolving]
  - General physical health deterioration [Recovering/Resolving]
